FAERS Safety Report 7340796-2 (Version None)
Quarter: 2011Q1

REPORT INFORMATION
  Report Type: 
  Country: None (occurrence: None)
  Receive Date: 20110301
  Receipt Date: 20110215
  Transmission Date: 20110831
  Serious: Yes (Death, Hospitalization, Other)
  Sender: FDA-Public Use
  Company Number: 2011AP000213

PATIENT
  Age: 5 Year
  Sex: Male

DRUGS (6)
  1. IMMUNE GLOBULIN NOS [Concomitant]
  2. ANTITHYMOCYTE [Concomitant]
  3. METHOTREXATE [Suspect]
     Indication: PROPHYLAXIS AGAINST GRAFT VERSUS HOST DISEASE
  4. CYCLOSPORINE [Suspect]
     Indication: PROPHYLAXIS AGAINST GRAFT VERSUS HOST DISEASE
  5. CYCLOPHOSPHAMIDE [Concomitant]
  6. MYCOPHENOLATE MOFETIL [Suspect]
     Indication: PROPHYLAXIS AGAINST GRAFT VERSUS HOST DISEASE

REACTIONS (12)
  - PULMONARY ARTERIAL HYPERTENSION [None]
  - ANAEMIA [None]
  - NO THERAPEUTIC RESPONSE [None]
  - THROMBOTIC THROMBOCYTOPENIC PURPURA [None]
  - RESPIRATORY FAILURE [None]
  - INTERSTITIAL LUNG DISEASE [None]
  - EMPHYSEMA [None]
  - ENDOTHELIAL DYSFUNCTION [None]
  - ACUTE RESPIRATORY DISTRESS SYNDROME [None]
  - CYANOSIS [None]
  - QRS AXIS ABNORMAL [None]
  - RIGHT VENTRICULAR HYPERTROPHY [None]
